FAERS Safety Report 7430859-5 (Version None)
Quarter: 2011Q2

REPORT INFORMATION
  Report Type: 
  Country: None (occurrence: None)
  Receive Date: 20110421
  Receipt Date: 20110411
  Transmission Date: 20111010
  Serious: Yes (Other)
  Sender: FDA-Public Use
  Company Number: CA-JNJFOC-20110405839

PATIENT
  Sex: Female
  Weight: 82.5 kg

DRUGS (5)
  1. METHOTREXATE [Concomitant]
  2. FLOVENT [Concomitant]
     Dosage: PRN
  3. DIOVAN [Concomitant]
  4. FOLIC ACID [Concomitant]
  5. REMICADE [Suspect]
     Indication: RHEUMATOID ARTHRITIS
     Route: 042

REACTIONS (1)
  - LUNG NEOPLASM MALIGNANT [None]
